FAERS Safety Report 18431014 (Version 1)
Quarter: 2020Q4

REPORT INFORMATION
  Report Type: Report from Study
  Country: BR (occurrence: BR)
  Receive Date: 20201027
  Receipt Date: 20201027
  Transmission Date: 20210114
  Serious: Yes (Other)
  Sender: FDA-Public Use
  Company Number: NVSC2020BR285386

PATIENT
  Sex: Female

DRUGS (1)
  1. ENTRESTO [Suspect]
     Active Substance: SACUBITRIL\VALSARTAN
     Indication: CARDIAC FAILURE
     Dosage: 1 DF, BID (1 IN THE MORNING AND 1 AT NIGHT)
     Route: 065

REACTIONS (13)
  - Gait disturbance [Recovering/Resolving]
  - Weight increased [Unknown]
  - Hypotension [Unknown]
  - Somnolence [Not Recovered/Not Resolved]
  - Dizziness [Not Recovered/Not Resolved]
  - Dyspnoea [Not Recovered/Not Resolved]
  - Malaise [Unknown]
  - Diabetes mellitus [Unknown]
  - Delirium [Recovered/Resolved]
  - Soliloquy [Recovered/Resolved]
  - Hypertension [Unknown]
  - Asthenia [Unknown]
  - Renal disorder [Recovering/Resolving]
